FAERS Safety Report 16987649 (Version 1)
Quarter: 2019Q4

REPORT INFORMATION
  Report Type: Report from Study
  Country: None (occurrence: US)
  Receive Date: 20191104
  Receipt Date: 20191104
  Transmission Date: 20200122
  Serious: Yes (Hospitalization, Other)
  Sender: FDA-Public Use
  Company Number: US-ABBVIE-19K-163-2956721-00

PATIENT
  Sex: Female
  Weight: 59 kg

DRUGS (3)
  1. VENCLEXTA [Suspect]
     Active Substance: VENETOCLAX
     Indication: MARROW HYPERPLASIA
     Route: 048
     Dates: start: 20190905, end: 20190910
  2. VENCLEXTA [Suspect]
     Active Substance: VENETOCLAX
     Indication: MYELOFIBROSIS
     Route: 048
     Dates: start: 20190911, end: 20190912
  3. VENCLEXTA [Suspect]
     Active Substance: VENETOCLAX
     Indication: ACUTE MYELOID LEUKAEMIA
     Route: 048
     Dates: start: 20190831, end: 20190904

REACTIONS (1)
  - Acute myeloid leukaemia refractory [Not Recovered/Not Resolved]

NARRATIVE: CASE EVENT DATE: 2019
